FAERS Safety Report 6299026-5 (Version None)
Quarter: 2009Q3

REPORT INFORMATION
  Report Type: 
  Country: None (occurrence: None)
  Receive Date: 20090806
  Receipt Date: 20090731
  Transmission Date: 20100115
  Serious: Yes (Hospitalization, Other)
  Sender: FDA-Public Use
  Company Number: FR-BRISTOL-MYERS SQUIBB COMPANY-14537559

PATIENT
  Age: 26 Year
  Sex: Female

DRUGS (12)
  1. ENDOXAN [Suspect]
     Indication: T-CELL LYMPHOMA
     Dosage: 26DEC08,3RD, 09JAN09. DAY 1 TOTAL DOSE-10MG.
     Route: 042
     Dates: start: 20081212, end: 20081212
  2. BLEOMYCIN SULFATE [Suspect]
     Indication: T-CELL LYMPHOMA
     Dosage: 26DEC08,13JAN09.DAY1AND 5 TOTAL DOSE=10MG.
     Route: 042
     Dates: start: 20081212, end: 20081212
  3. ADRIBLASTINE [Suspect]
     Indication: T-CELL LYMPHOMA
     Dosage: 26DEC08, 09JAN09.
     Route: 042
     Dates: start: 20081212, end: 20081212
  4. ELDISINE [Suspect]
     Indication: T-CELL LYMPHOMA
     Dosage: DAY1-TOTAL DOSE=10MG DAY5-TOTAL DOSE=10MG;13JAN09.
     Route: 042
     Dates: start: 20081212, end: 20081212
  5. SOLU-MEDROL [Suspect]
     Indication: T-CELL LYMPHOMA
     Dosage: DAY1 TOTAL DOSE=10MG, DAY2=15MG,DAY5=10MG. 26DEC08,13JAN09.
     Route: 042
     Dates: start: 20081212, end: 20081212
  6. METHOTREXATE SODIUM [Suspect]
     Indication: T-CELL LYMPHOMA
     Dosage: DAY2=15MG. ROA=MY
     Route: 037
     Dates: start: 20081213, end: 20090110
  7. PANTOPRAZOLE SODIUM [Concomitant]
  8. METOCLOPRAMIDE [Concomitant]
  9. ALGINIC ACID [Concomitant]
  10. LENOGRASTIM [Concomitant]
  11. NICOTINE [Concomitant]
  12. EPOETIN BETA [Concomitant]

REACTIONS (4)
  - BONE MARROW FAILURE [None]
  - MUCOSAL INFLAMMATION [None]
  - PALMAR-PLANTAR ERYTHRODYSAESTHESIA SYNDROME [None]
  - STAPHYLOCOCCAL INFECTION [None]
